FAERS Safety Report 19883637 (Version 5)
Quarter: 2024Q2

REPORT INFORMATION
  Report Type: Report from Study
  Country: US (occurrence: US)
  Receive Date: 20210927
  Receipt Date: 20240531
  Transmission Date: 20240716
  Serious: Yes (Hospitalization, Other)
  Sender: FDA-Public Use
  Company Number: US-ACADIA PHARMACEUTICALS INC.-ACA-2021-PIM-003216

PATIENT
  Sex: Male

DRUGS (3)
  1. NUPLAZID [Suspect]
     Active Substance: PIMAVANSERIN TARTRATE
     Indication: Parkinson^s disease psychosis
     Dosage: 34 MILLIGRAM, QD
     Route: 048
     Dates: start: 202107, end: 20220628
  2. NUPLAZID [Suspect]
     Active Substance: PIMAVANSERIN TARTRATE
     Indication: Hallucination
     Dosage: 34 MILLIGRAM, QD
     Route: 048
     Dates: start: 2023
  3. NUPLAZID [Suspect]
     Active Substance: PIMAVANSERIN TARTRATE
     Indication: Delusion

REACTIONS (17)
  - Loss of consciousness [Recovered/Resolved]
  - Pruritus [Recovered/Resolved]
  - Wheezing [Unknown]
  - Chest discomfort [Recovered/Resolved]
  - Dysphagia [Unknown]
  - Dysphonia [Not Recovered/Not Resolved]
  - Incontinence [Not Recovered/Not Resolved]
  - Product dose omission issue [Unknown]
  - Pain [Not Recovered/Not Resolved]
  - Delusion [Recovering/Resolving]
  - Product dose omission issue [Recovered/Resolved]
  - Throat tightness [Recovered/Resolved]
  - Confusional state [Unknown]
  - Hallucination [Recovered/Resolved]
  - Hallucination, visual [Not Recovered/Not Resolved]
  - Agitation [Recovering/Resolving]
  - Constipation [Not Recovered/Not Resolved]

NARRATIVE: CASE EVENT DATE: 20210101
